FAERS Safety Report 16711515 (Version 1)
Quarter: 2019Q3

REPORT INFORMATION
  Report Type: Spontaneous
  Country: US (occurrence: US)
  Receive Date: 20190816
  Receipt Date: 20190816
  Transmission Date: 20191004
  Serious: Yes (Hospitalization)
  Sender: FDA-Public Use
  Company Number: US-SA-2019SA222690

PATIENT
  Sex: Male

DRUGS (1)
  1. NASACORT AQ [Suspect]
     Active Substance: TRIAMCINOLONE ACETONIDE

REACTIONS (2)
  - Injury [Unknown]
  - Unevaluable event [Unknown]
